FAERS Safety Report 6919273-6 (Version None)
Quarter: 2010Q3

REPORT INFORMATION
  Report Type: 
  Country: None (occurrence: None)
  Receive Date: 20100810
  Receipt Date: 20100810
  Transmission Date: 20110219
  Serious: Yes (Other)
  Sender: FDA-Public Use
  Company Number: None

PATIENT
  Sex: Female
  Weight: 92.4 kg

DRUGS (2)
  1. LAMICTAL ODT [Suspect]
     Indication: EPILEPSY
     Dosage: 100 MGS
  2. LAMICTAL ODT [Suspect]
     Indication: HYDROCEPHALUS
     Dosage: 100 MGS

REACTIONS (2)
  - CONVULSION [None]
  - PRODUCT SUBSTITUTION ISSUE [None]
